FAERS Safety Report 21745255 (Version 1)
Quarter: 2022Q4

REPORT INFORMATION
  Report Type: Spontaneous
  Country: US (occurrence: US)
  Receive Date: 20221219
  Receipt Date: 20221219
  Transmission Date: 20230113
  Serious: Yes (Hospitalization)
  Sender: FDA-Public Use
  Company Number: None

PATIENT
  Age: 75 Year
  Sex: Male

DRUGS (4)
  1. PREDNISONE [Suspect]
     Active Substance: PREDNISONE
     Indication: Autoimmune enteropathy
     Dosage: HIGH DOSE
     Route: 042
  2. PREDNISONE [Suspect]
     Active Substance: PREDNISONE
  3. BUDESONIDE [Concomitant]
     Active Substance: BUDESONIDE
     Indication: Autoimmune enteropathy
  4. AZATHIOPRINE [Concomitant]
     Active Substance: AZATHIOPRINE
     Indication: Autoimmune enteropathy

REACTIONS (1)
  - Rebound effect [Recovering/Resolving]
